FAERS Safety Report 21095089 (Version 1)
Quarter: 2022Q3

REPORT INFORMATION
  Report Type: Spontaneous
  Country: US (occurrence: None)
  Receive Date: 20220716
  Receipt Date: 20220716
  Transmission Date: 20221027
  Serious: No
  Sender: FDA-Public Use
  Company Number: None

PATIENT
  Age: 68 Year
  Sex: Female
  Weight: 85.5 kg

DRUGS (14)
  1. REGENEREYES PRO [Suspect]
     Active Substance: GLYCERIN
     Indication: Dry eye
     Dates: start: 20220420, end: 20220716
  2. REGENEREYES LITE [Suspect]
     Active Substance: GLYCERIN
     Indication: Product used for unknown indication
  3. RESTASIS [Concomitant]
     Active Substance: CYCLOSPORINE
  4. serum eye drops [Concomitant]
  5. symbicourt [Concomitant]
  6. FLONASE [Concomitant]
     Active Substance: FLUTICASONE PROPIONATE
  7. LIPICOR [Concomitant]
  8. PROSE eye lenses [Concomitant]
  9. TRAMADOL [Concomitant]
     Active Substance: TRAMADOL
  10. ATIVAN [Concomitant]
     Active Substance: LORAZEPAM
  11. LEXAPRO [Concomitant]
     Active Substance: ESCITALOPRAM OXALATE
  12. TART CHERRY [Concomitant]
  13. FISH OIL [Concomitant]
     Active Substance: FISH OIL
  14. one a dayvitamins [Concomitant]

REACTIONS (4)
  - Vision blurred [None]
  - Product packaging issue [None]
  - Adverse drug reaction [None]
  - Product complaint [None]

NARRATIVE: CASE EVENT DATE: 20220701
